FAERS Safety Report 7714231-6 (Version None)
Quarter: 2011Q3

REPORT INFORMATION
  Report Type: 
  Country: None (occurrence: None)
  Receive Date: 20110829
  Receipt Date: 20110817
  Transmission Date: 20111222
  Serious: No
  Sender: FDA-Public Use
  Company Number: US-BIOGENIDEC-2011BI031646

PATIENT
  Sex: Male

DRUGS (2)
  1. TYSABRI [Suspect]
     Indication: MULTIPLE SCLEROSIS
     Route: 042
     Dates: start: 20110711
  2. TYSABRI [Suspect]
     Route: 042
     Dates: start: 20090714, end: 20101228

REACTIONS (7)
  - PAIN [None]
  - FATIGUE [None]
  - MULTIPLE SCLEROSIS [None]
  - ASTHMA [None]
  - DYSPNOEA [None]
  - BLOOD SODIUM [None]
  - MEMORY IMPAIRMENT [None]
